FAERS Safety Report 21728592 (Version 1)
Quarter: 2022Q4

REPORT INFORMATION
  Report Type: Spontaneous
  Country: US (occurrence: US)
  Receive Date: 20221214
  Receipt Date: 20221214
  Transmission Date: 20230112
  Serious: No
  Sender: FDA-Public Use
  Company Number: US-BRISTOL-MYERS SQUIBB COMPANY-2022-153147

PATIENT
  Age: 82 Year
  Sex: Female
  Weight: 62.6 kg

DRUGS (2)
  1. ELIQUIS [Suspect]
     Active Substance: APIXABAN
     Indication: Cerebrovascular accident prophylaxis
     Dosage: DOSE : 1 TABLET;     FREQ : TWICE DAILY
     Route: 048
     Dates: start: 20221114
  2. ELIQUIS [Suspect]
     Active Substance: APIXABAN
     Dosage: DOSE : 1 TABLET;     FREQ : TWICE DAILY
     Route: 048

REACTIONS (2)
  - Dizziness [Unknown]
  - Nausea [Unknown]

NARRATIVE: CASE EVENT DATE: 20221213
